FAERS Safety Report 15089614 (Version 7)
Quarter: 2019Q2

REPORT INFORMATION
  Report Type: Spontaneous
  Country: FR (occurrence: FR)
  Receive Date: 20180629
  Receipt Date: 20190521
  Transmission Date: 20190711
  Serious: Yes (Hospitalization, Other)
  Sender: FDA-Public Use
  Company Number: FR-AUROBINDO-AUR-APL-2018-032841

PATIENT

DRUGS (48)
  1. NEORAL [Suspect]
     Active Substance: CYCLOSPORINE
     Indication: PROPHYLAXIS AGAINST TRANSPLANT REJECTION
     Dosage: 40 MG, BID (ALSO REPORTED AS 80 MG, QD)
     Route: 048
     Dates: start: 2017
  2. CYMEVAN [Suspect]
     Active Substance: GANCICLOVIR
     Indication: PROPHYLAXIS
     Dosage: UNK
     Route: 042
     Dates: start: 20170330, end: 20170504
  3. GAVISCON [Suspect]
     Active Substance: ALUMINUM HYDROXIDE\MAGNESIUM CARBONATE
     Indication: GASTROOESOPHAGEAL REFLUX DISEASE
     Dosage: 3 DOSAGE FORM, ONCE A DAY
     Route: 048
     Dates: start: 2017
  4. URSOLVAN [Suspect]
     Active Substance: URSODIOL
     Indication: PRODUCT USED FOR UNKNOWN INDICATION
     Dosage: 200 MILLIGRAM
     Route: 048
     Dates: start: 20170331
  5. ZERBAXA [Suspect]
     Active Substance: CEFTOLOZANE SULFATE\TAZOBACTAM SODIUM
     Indication: CELLULITIS
     Dosage: 3 GRAM, ONCE A DAY
     Route: 042
     Dates: start: 20170331
  6. BACTRIM [Suspect]
     Active Substance: SULFAMETHOXAZOLE\TRIMETHOPRIM
     Indication: PNEUMOCYSTIS JIROVECII PNEUMONIA
     Dosage: 800 MILLIGRAM, ONCE A DAY
     Route: 048
     Dates: start: 201703, end: 20170526
  7. MYCOPHENOLATE MOFETIL. [Suspect]
     Active Substance: MYCOPHENOLATE MOFETIL
     Indication: PROPHYLAXIS AGAINST TRANSPLANT REJECTION
     Dosage: 1000 MILLIGRAM, TWO TIMES A DAY
     Route: 048
     Dates: start: 2017
  8. SMOFKABIVEN [Suspect]
     Active Substance: AMINO ACIDS\DEXTROSE\ELECTROLYTES NOS\SOYBEAN OIL
     Indication: PARENTERAL NUTRITION
     Dosage: 80 ML, QH, EMULSION FOR INFUSION
     Route: 042
     Dates: start: 2017, end: 2017
  9. BISOPROLOL [Concomitant]
     Active Substance: BISOPROLOL
     Indication: PROPHYLAXIS
     Dosage: UNK
     Route: 048
     Dates: start: 20170331
  10. RAMIPRIL. [Concomitant]
     Active Substance: RAMIPRIL
     Dosage: UNK
     Dates: start: 20170331
  11. SOLU-MEDROL [Suspect]
     Active Substance: METHYLPREDNISOLONE SODIUM SUCCINATE
     Indication: PRODUCT USED FOR UNKNOWN INDICATION
     Dosage: 160 MILLIGRAM, ONCE A DAY
     Route: 042
     Dates: start: 2017, end: 20170609
  12. SPASFON (PHLOROGLUCINOL/TRIMETHYLPHLOROGLUCINOL) [Suspect]
     Active Substance: PHLOROGLUCINOL\1,3,5-TRIMETHOXYBENZENE
     Indication: PAIN
     Dosage: 6 DOSAGE FORM, QD
     Route: 048
     Dates: start: 2017
  13. AMIKACIN. [Suspect]
     Active Substance: AMIKACIN
     Dosage: UNK
     Route: 042
     Dates: start: 20170607, end: 20170610
  14. KEPPRA [Suspect]
     Active Substance: LEVETIRACETAM
     Indication: EPILEPSY
     Dosage: 1000 MILLIGRAM, DAILY
     Route: 048
     Dates: start: 20170422
  15. URAPIDIL [Suspect]
     Active Substance: URAPIDIL
     Indication: HYPERTENSION
     Dosage: 2 MILLIGRAM, EVERY HOUR
     Route: 042
     Dates: start: 201703, end: 20170330
  16. BISOPROLOL [Concomitant]
     Active Substance: BISOPROLOL
     Dosage: UNK
     Route: 048
     Dates: start: 20170531
  17. AMLOR [Concomitant]
     Active Substance: AMLODIPINE BESYLATE
     Indication: EPILEPSY
     Dosage: UNK
     Route: 048
     Dates: start: 20170526
  18. CANCIDAS [Suspect]
     Active Substance: CASPOFUNGIN ACETATE
     Indication: FUNGAL INFECTION
     Dosage: 70 MILLIGRAM, ONCE A DAY
     Route: 042
     Dates: start: 201703
  19. CANCIDAS [Suspect]
     Active Substance: CASPOFUNGIN ACETATE
     Indication: FUNGAL INFECTION
     Dosage: 70 MG, QD, ALSO REPORTED AS 70MG POWDER FOR SOLUTION FOR INFUSION
     Route: 042
     Dates: start: 2017
  20. TIORFAN [Suspect]
     Active Substance: RACECADOTRIL
     Indication: DIARRHOEA
     Dosage: 600 MILLIGRAM, QD
     Route: 048
     Dates: start: 2017
  21. ZELITREX [Suspect]
     Active Substance: VALACYCLOVIR HYDROCHLORIDE
     Indication: PROPHYLAXIS
     Dosage: UNK
     Route: 048
     Dates: start: 20170504
  22. MYCOPHENOLATE MOFETIL. [Suspect]
     Active Substance: MYCOPHENOLATE MOFETIL
     Dosage: 1 GRAM, BID
     Dates: start: 2017
  23. WELLVONE [Concomitant]
     Active Substance: ATOVAQUONE
     Indication: PRODUCT USED FOR UNKNOWN INDICATION
     Dosage: UNK
     Route: 065
     Dates: start: 20170526
  24. PARACETAMOL [Suspect]
     Active Substance: ACETAMINOPHEN
     Indication: PAIN
     Dosage: 3 GRAM, ONCE A DAY
     Route: 048
     Dates: start: 2017
  25. DITROPAN [Suspect]
     Active Substance: OXYBUTYNIN CHLORIDE
     Indication: PRODUCT USED FOR UNKNOWN INDICATION
     Dosage: 5 MILLIGRAM, DAILY
     Route: 048
     Dates: start: 2017, end: 20170509
  26. AMIKACIN. [Suspect]
     Active Substance: AMIKACIN
     Dosage: 20 MILLIGRAM, FOUR TIMES/DAY
     Route: 042
     Dates: start: 20170403
  27. AMLOR [Concomitant]
     Active Substance: AMLODIPINE BESYLATE
     Dosage: UNK
     Dates: start: 20170526
  28. DITROPAN [Suspect]
     Active Substance: OXYBUTYNIN CHLORIDE
     Dosage: 15 MILLIGRAM, ONCE A DAY
     Route: 048
     Dates: start: 2017, end: 20170509
  29. AMIKACIN. [Suspect]
     Active Substance: AMIKACIN
     Indication: PRODUCT USED FOR UNKNOWN INDICATION
     Dosage: NON RENSEIGN?E
     Route: 042
     Dates: start: 20170403, end: 20170408
  30. ACUPAN [Suspect]
     Active Substance: NEFOPAM HYDROCHLORIDE
     Indication: PAIN
     Dosage: 20 MILLIGRAM, FOUR TIMES/DAY
     Route: 042
     Dates: start: 2017
  31. CELLCEPT [Suspect]
     Active Substance: MYCOPHENOLATE MOFETIL\MYCOPHENOLATE MOFETIL HYDROCHLORIDE
     Indication: PROPHYLAXIS AGAINST TRANSPLANT REJECTION
     Dosage: 2000 MILLIGRAM, DAILY
     Route: 048
     Dates: start: 2017
  32. PARACETAMOL [Suspect]
     Active Substance: ACETAMINOPHEN
     Indication: PYREXIA
  33. SPASFON (PHLOROGLUCINOL/TRIMETHYLPHLOROGLUCINOL) [Suspect]
     Active Substance: PHLOROGLUCINOL\1,3,5-TRIMETHOXYBENZENE
     Dosage: 6 DOSAGE FORM, ONCE A DAY
     Route: 048
     Dates: start: 2017
  34. EUPANTOL [Suspect]
     Active Substance: PANTOPRAZOLE SODIUM
     Indication: GASTROOESOPHAGEAL REFLUX DISEASE
     Dosage: 40 MILLIGRAM, ONCE A DAY
     Route: 048
     Dates: start: 2017
  35. HYDROCORTISONE. [Suspect]
     Active Substance: HYDROCORTISONE
     Indication: PRODUCT USED FOR UNKNOWN INDICATION
     Dosage: UNK
     Route: 065
  36. NEORAL [Suspect]
     Active Substance: CYCLOSPORINE
     Dosage: UNK
     Route: 048
  37. AMIKACIN. [Suspect]
     Active Substance: AMIKACIN
     Dosage: UNK
     Route: 042
     Dates: start: 20170421, end: 20170424
  38. TIENAM [Suspect]
     Active Substance: CILASTATIN SODIUM\IMIPENEM
     Indication: PRODUCT USED FOR UNKNOWN INDICATION
     Dosage: 500 MILLIGRAM, 3 TIMES A DAY
     Route: 042
     Dates: start: 201703, end: 20170403
  39. ZYVOXID [Suspect]
     Active Substance: LINEZOLID
     Indication: PRODUCT USED FOR UNKNOWN INDICATION
     Dosage: 600 MILLIGRAM, TWO TIMES A DAY
     Route: 042
     Dates: start: 201703, end: 20170430
  40. EUPRESSYL [Suspect]
     Active Substance: URAPIDIL
     Indication: HYPERTENSION
     Dosage: 2 MILLIGRAM, EVERY HOUR
     Route: 042
     Dates: start: 201703, end: 20170330
  41. SPASFON (PHLOROGLUCINOL/TRIMETHYLPHLOROGLUCINOL) [Suspect]
     Active Substance: PHLOROGLUCINOL\1,3,5-TRIMETHOXYBENZENE
     Dosage: 2 DOSAGE FORM
     Route: 048
     Dates: start: 2017
  42. AMIKACIN. [Suspect]
     Active Substance: AMIKACIN
     Dosage: UNK
     Route: 042
     Dates: start: 20170526, end: 20170529
  43. AMIKACIN. [Suspect]
     Active Substance: AMIKACIN
     Dosage: UNK
     Route: 042
     Dates: start: 20170403, end: 20170408
  44. EUPANTOL [Suspect]
     Active Substance: PANTOPRAZOLE SODIUM
     Dosage: 40 MILLIGRAM, ONCE A DAY
     Route: 042
     Dates: start: 2017
  45. MAGNESIUM ALGINATE;SODIUM ALGINATE [Suspect]
     Active Substance: MAGNESIUM ALGINATE\SODIUM ALGINATE
     Indication: GASTROOESOPHAGEAL REFLUX DISEASE
     Dosage: 1 DOSAGE FORM, 3 TIMES A DAY
     Route: 048
     Dates: start: 2017
  46. AMLOR [Concomitant]
     Active Substance: AMLODIPINE BESYLATE
     Dosage: 1000 MILLIGRAM, ONCE A DAY
     Route: 065
  47. RAMIPRIL. [Concomitant]
     Active Substance: RAMIPRIL
     Indication: PROPHYLAXIS AGAINST TRANSPLANT REJECTION
     Dosage: 2000 MILLIGRAM, ONCE A DAY
     Route: 048
     Dates: start: 20170331
  48. TARGOCID [Concomitant]
     Active Substance: TEICOPLANIN
     Indication: PRODUCT USED FOR UNKNOWN INDICATION
     Dosage: UNK
     Route: 065
     Dates: start: 20170524, end: 20170529

REACTIONS (3)
  - Pancytopenia [Recovered/Resolved]
  - Confusional state [Not Recovered/Not Resolved]
  - Amnesia [Not Recovered/Not Resolved]

NARRATIVE: CASE EVENT DATE: 20170329
